FAERS Safety Report 4319439-8 (Version None)
Quarter: 2004Q1

REPORT INFORMATION
  Report Type: 
  Country: None (occurrence: None)
  Receive Date: 20040316
  Receipt Date: 20040309
  Transmission Date: 20041129
  Serious: Yes (Hospitalization)
  Sender: FDA-Public Use
  Company Number: TPA2004A00163

PATIENT
  Age: 70 Year
  Sex: Female
  Weight: 62.5964 kg

DRUGS (4)
  1. ACTOS [Suspect]
     Dosage: 30 MG PER ORAL
     Route: 048
  2. UNKNOWN INSULIN (INSULIN) [Concomitant]
  3. GLUCOTROL XL (BLIPIZIDE) [Concomitant]
  4. HUMULIN N (INSULIN HUMAN INJECTION, ISOPHANE) (30 IU (INTERNATIONAL UN [Concomitant]

REACTIONS (11)
  - BLOOD GLUCOSE INCREASED [None]
  - DIABETES MELLITUS INADEQUATE CONTROL [None]
  - DIALYSIS [None]
  - ENCEPHALOPATHY [None]
  - HEPATITIS [None]
  - MENTAL STATUS CHANGES [None]
  - MULTIPLE MYELOMA [None]
  - NEPHROTIC SYNDROME [None]
  - RENAL FAILURE [None]
  - RENAL FAILURE ACUTE [None]
  - SEPSIS [None]
